FAERS Safety Report 4639049-2 (Version None)
Quarter: 2005Q2

REPORT INFORMATION
  Report Type: 
  Country: None (occurrence: None)
  Receive Date: 20050419
  Receipt Date: 20050411
  Transmission Date: 20051028
  Serious: Yes (Other)
  Sender: FDA-Public Use
  Company Number: PHFR2005GB01483

PATIENT
  Age: 75 Year
  Sex: 0

DRUGS (3)
  1. QUINAPRIL [Concomitant]
     Indication: HYPERTENSION
     Dosage: 5MG/DAY
     Route: 048
  2. SIMVASTATIN [Concomitant]
     Route: 048
  3. GLEEVEC [Suspect]
     Indication: CHRONIC MYELOID LEUKAEMIA
     Dosage: 400MG/DAY
     Route: 048
     Dates: start: 20010301

REACTIONS (3)
  - DECREASED APPETITE [None]
  - GASTROINTESTINAL MOTILITY DISORDER [None]
  - WEIGHT DECREASED [None]
